FAERS Safety Report 11163843 (Version 2)
Quarter: 2015Q3

REPORT INFORMATION
  Report Type: Spontaneous
  Country: BR (occurrence: BR)
  Receive Date: 20150604
  Receipt Date: 20150714
  Transmission Date: 20151125
  Serious: No
  Sender: FDA-Public Use
  Company Number: BR-AMGEN-BRASP2015005562

PATIENT
  Age: 70 Year
  Sex: Female
  Weight: 48 kg

DRUGS (10)
  1. ENBREL [Suspect]
     Active Substance: ETANERCEPT
     Indication: PRODUCT USED FOR UNKNOWN INDICATION
     Dosage: 50 MG, ONCE WEEKLY
     Route: 065
     Dates: start: 20141217, end: 20150408
  2. ENBREL [Suspect]
     Active Substance: ETANERCEPT
     Dosage: 50 MG, WEEKLY
     Route: 065
     Dates: start: 20150527
  3. DEFLAIMMUN [Concomitant]
     Dosage: 1 TABLET, DAILY
     Dates: start: 2010
  4. ENBREL [Suspect]
     Active Substance: ETANERCEPT
     Dosage: UNK
     Route: 065
  5. MELOXICAM. [Concomitant]
     Active Substance: MELOXICAM
     Dosage: STRENGTH 7.5 MG, 1X/DAY
     Dates: start: 2010, end: 201503
  6. ENBREL [Suspect]
     Active Substance: ETANERCEPT
     Dosage: 50 MG, WEEKLY
     Route: 065
  7. FLODIN DUO [Concomitant]
     Dosage: UNSPECIFIED DOSE, AS NEEDED
     Dates: start: 2010
  8. ENBREL [Suspect]
     Active Substance: ETANERCEPT
     Dosage: 50 MG, WEEKLY
     Route: 065
  9. MIONEVRIX                          /06215701/ [Concomitant]
     Indication: PAIN
     Dosage: UNSPECIFIED DOSE, WHEN PAINS ARE STRONG
     Dates: start: 2010
  10. DEFLAZACORT [Concomitant]
     Active Substance: DEFLAZACORT
     Dosage: STRENGTH 7.5 MG, UNK
     Dates: start: 2010

REACTIONS (23)
  - Pain in extremity [Unknown]
  - Skin discolouration [Recovered/Resolved]
  - Injection site oedema [Unknown]
  - Rash macular [Recovered/Resolved]
  - Productive cough [Recovered/Resolved]
  - Bedridden [Recovered/Resolved]
  - Pruritus [Recovered/Resolved]
  - Swelling [Recovered/Resolved]
  - Drug ineffective [Recovered/Resolved]
  - Injection site erythema [Recovered/Resolved]
  - Skin exfoliation [Unknown]
  - Injection site warmth [Recovered/Resolved]
  - Cough [Recovered/Resolved]
  - Pain [Recovered/Resolved]
  - Pyrexia [Unknown]
  - Body temperature increased [Recovered/Resolved]
  - Condition aggravated [Recovered/Resolved]
  - Feeling hot [Unknown]
  - Injection site haematoma [Recovered/Resolved]
  - Rash [Unknown]
  - Injection site swelling [Recovered/Resolved]
  - Feeling abnormal [Unknown]
  - Blister [Recovered/Resolved]

NARRATIVE: CASE EVENT DATE: 2015
